FAERS Safety Report 10310624 (Version 1)
Quarter: 2014Q3

REPORT INFORMATION
  Report Type: Spontaneous
  Country: US (occurrence: None)
  Receive Date: 20140716
  Receipt Date: 20140716
  Transmission Date: 20150326
  Serious: Yes (Disabling)
  Sender: FDA-Public Use
  Company Number: None

PATIENT
  Age: 6 Year
  Sex: Female
  Weight: 22.23 kg

DRUGS (1)
  1. MIRALAX [Suspect]
     Active Substance: POLYETHYLENE GLYCOL 3350
     Route: 048
     Dates: start: 20140704

REACTIONS (9)
  - Pain [None]
  - Self injurious behaviour [None]
  - Gastric disorder [None]
  - Anger [None]
  - Suicidal ideation [None]
  - Abnormal faeces [None]
  - Abnormal behaviour [None]
  - Anxiety [None]
  - Mental disorder [None]

NARRATIVE: CASE EVENT DATE: 20140715
